FAERS Safety Report 11047539 (Version 1)
Quarter: 2015Q2

REPORT INFORMATION
  Report Type: Spontaneous
  Country: US (occurrence: None)
  Receive Date: 20150417
  Receipt Date: 20150417
  Transmission Date: 20150821
  Serious: Yes (Hospitalization)
  Sender: FDA-Public Use
  Company Number: None

PATIENT
  Age: 41 Year
  Sex: Female

DRUGS (1)
  1. RASUVO [Suspect]
     Active Substance: METHOTREXATE SODIUM
     Indication: POLYARTHRITIS
     Dosage: 20MG, SC, EVERY WEEK
     Route: 058
     Dates: start: 20150114

REACTIONS (3)
  - Bronchitis [None]
  - Pneumonia [None]
  - Seasonal allergy [None]

NARRATIVE: CASE EVENT DATE: 201503
